FAERS Safety Report 8166071-4 (Version None)
Quarter: 2012Q1

REPORT INFORMATION
  Report Type: 
  Country: None (occurrence: None)
  Receive Date: 20120227
  Receipt Date: 20110304
  Transmission Date: 20120608
  Serious: Yes (Other)
  Sender: FDA-Public Use
  Company Number: US-MYLANLABS-2011S1004638

PATIENT
  Age: 20 Year
  Sex: Female

DRUGS (8)
  1. CLARAVIS [Suspect]
     Route: 048
     Dates: start: 20100805, end: 20110207
  2. IMITREX [Concomitant]
     Indication: MIGRAINE
  3. ADDERALL 5 [Concomitant]
     Indication: ATTENTION DEFICIT/HYPERACTIVITY DISORDER
  4. CLARAVIS [Suspect]
     Indication: ACNE
     Route: 048
     Dates: start: 20100805
  5. ALBUTEROL [Concomitant]
     Indication: HYPERSENSITIVITY
  6. AMNESTEEM [Suspect]
     Indication: ACNE
     Route: 048
     Dates: end: 20110207
  7. EPIPEN [Concomitant]
     Indication: HYPERSENSITIVITY
  8. ORAL CONTRACEPTIVE NOS [Concomitant]
     Route: 048

REACTIONS (4)
  - BLOOD CHOLESTEROL INCREASED [None]
  - RECTAL HAEMORRHAGE [None]
  - LOW DENSITY LIPOPROTEIN INCREASED [None]
  - ASPARTATE AMINOTRANSFERASE INCREASED [None]
